FAERS Safety Report 4958954-0 (Version None)
Quarter: 2006Q1

REPORT INFORMATION
  Report Type: 
  Country: None (occurrence: None)
  Receive Date: 20060327
  Receipt Date: 20060317
  Transmission Date: 20060701
  Serious: Yes (Other)
  Sender: FDA-Public Use
  Company Number: FRWYE480017MAR06

PATIENT
  Age: 65 Year
  Sex: Male

DRUGS (2)
  1. EFFEXOR XR [Suspect]
     Dosage: 112.5 MG TOTAL DAILY ORAL; SEE IMAGE
     Route: 048
     Dates: end: 20060301
  2. EFFEXOR XR [Suspect]
     Dosage: 112.5 MG TOTAL DAILY ORAL; SEE IMAGE
     Route: 048
     Dates: start: 20060301

REACTIONS (4)
  - GASTRIC HAEMORRHAGE [None]
  - GASTRITIS EROSIVE [None]
  - GASTROINTESTINAL DISORDER [None]
  - MELAENA [None]
